FAERS Safety Report 10408809 (Version 1)
Quarter: 2014Q3

REPORT INFORMATION
  Report Type: Spontaneous
  Country: US (occurrence: None)
  Receive Date: 20140822
  Receipt Date: 20140822
  Transmission Date: 20150326
  Serious: Yes (Other)
  Sender: FDA-Public Use
  Company Number: None

PATIENT
  Age: 58 Year
  Sex: Female
  Weight: 77.11 kg

DRUGS (9)
  1. ACIDOLPPOLUS [Concomitant]
  2. FLAX SEED [Concomitant]
     Active Substance: FLAX SEED
  3. VIIBRYD [Concomitant]
     Active Substance: VILAZODONE HYDROCHLORIDE
  4. SINGULAIR [Concomitant]
     Active Substance: MONTELUKAST SODIUM
  5. AVAPRO [Concomitant]
     Active Substance: IRBESARTAN
  6. SLO FE [Concomitant]
  7. XARELTO [Suspect]
     Active Substance: RIVAROXABAN
     Indication: THROMBOSIS
     Dosage: 1X DAY
     Dates: start: 201304, end: 201305
  8. DEXILANT [Concomitant]
     Active Substance: DEXLANSOPRAZOLE
  9. RESTASIS [Concomitant]
     Active Substance: CYCLOSPORINE

REACTIONS (7)
  - Disease recurrence [None]
  - Cough [None]
  - Dysphagia [None]
  - Gastrooesophageal reflux disease [None]
  - Nephrolithiasis [None]
  - Ankle operation [None]
  - Vomiting [None]

NARRATIVE: CASE EVENT DATE: 201305
